FAERS Safety Report 8197499-4 (Version None)
Quarter: 2012Q1

REPORT INFORMATION
  Report Type: 
  Country: None (occurrence: None)
  Receive Date: 20120309
  Receipt Date: 20120305
  Transmission Date: 20120608
  Serious: Yes (Other)
  Sender: FDA-Public Use
  Company Number: US-PFIZER INC-2012059311

PATIENT
  Sex: Male
  Weight: 81.633 kg

DRUGS (2)
  1. ZOLOFT [Suspect]
     Indication: EMOTIONAL DISORDER
  2. ZOLOFT [Suspect]
     Indication: DEPRESSION
     Dosage: UNK
     Dates: start: 20101101, end: 20100101

REACTIONS (1)
  - APATHY [None]
